FAERS Safety Report 7436257-2 (Version None)
Quarter: 2011Q2

REPORT INFORMATION
  Report Type: 
  Country: None (occurrence: None)
  Receive Date: 20110425
  Receipt Date: 20110411
  Transmission Date: 20111010
  Serious: Yes (Other)
  Sender: FDA-Public Use
  Company Number: DK-MYLANLABS-2011S1007549

PATIENT
  Age: 45 Year

DRUGS (1)
  1. SERTRALINE [Suspect]
     Indication: DEPRESSION
     Route: 048
     Dates: start: 20101215

REACTIONS (3)
  - VOMITING [None]
  - ABDOMINAL PAIN UPPER [None]
  - PROCTALGIA [None]
